FAERS Safety Report 6440807-2 (Version None)
Quarter: 2009Q4

REPORT INFORMATION
  Report Type: 
  Country: None (occurrence: None)
  Receive Date: 20091116
  Receipt Date: 20091111
  Transmission Date: 20100525
  Serious: Yes (Death)
  Sender: FDA-Public Use
  Company Number: JP-JNJFOC-20091103994

PATIENT
  Age: 48 Year
  Sex: Female

DRUGS (7)
  1. RISPERDAL CONSTA [Suspect]
     Indication: SCHIZOPHRENIA
     Route: 030
  2. IMPROMEN [Suspect]
     Indication: SCHIZOPHRENIA
     Route: 048
  3. ZOTEPINE [Suspect]
     Indication: SCHIZOPHRENIA
     Route: 048
  4. LEVOMEPROMAZINE MALEATE [Suspect]
     Indication: SCHIZOPHRENIA
     Route: 048
  5. RONFLEMAN [Suspect]
     Indication: DRUG USE FOR UNKNOWN INDICATION
     Route: 048
  6. FLUNITRAZEPAM [Suspect]
     Indication: DRUG USE FOR UNKNOWN INDICATION
     Route: 065
  7. DEPAKENE [Suspect]
     Indication: DRUG USE FOR UNKNOWN INDICATION
     Route: 048

REACTIONS (1)
  - MYOCARDIAL INFARCTION [None]
